FAERS Safety Report 8227791-6 (Version None)
Quarter: 2012Q1

REPORT INFORMATION
  Report Type: 
  Country: None (occurrence: None)
  Receive Date: 20120322
  Receipt Date: 20120315
  Transmission Date: 20120608
  Serious: Yes (Hospitalization, Disabling)
  Sender: FDA-Public Use
  Company Number: US-ROCHE-1038272

PATIENT
  Sex: Female
  Weight: 64.105 kg

DRUGS (8)
  1. PEPCID [Concomitant]
     Indication: GASTROOESOPHAGEAL REFLUX DISEASE
     Dosage: AS REQUIRED
     Route: 048
  2. ZOLOFT [Concomitant]
     Indication: ANXIETY
     Route: 048
     Dates: start: 20120201
  3. LORAZEPAM [Concomitant]
     Indication: ANXIETY
     Dosage: 1.5-2 DAILY
     Route: 048
     Dates: start: 20120201
  4. NAPROXEN (ALEVE) [Concomitant]
     Indication: PAIN
     Dosage: AS REQUIRED
     Route: 048
  5. RIBAVIRIN [Suspect]
     Indication: HEPATITIS C
     Dates: start: 20120114, end: 20120227
  6. TYLENOL [Concomitant]
     Indication: PAIN
     Dosage: AS REQUIRED
     Route: 048
  7. PEGASYS [Suspect]
     Indication: HEPATITIS C
     Route: 058
     Dates: start: 20120114, end: 20120227
  8. TELAPREVIR [Suspect]
     Indication: HEPATITIS C
     Dates: start: 20120114, end: 20120227

REACTIONS (5)
  - CHEST DISCOMFORT [None]
  - FATIGUE [None]
  - ANXIETY [None]
  - ANAEMIA [None]
  - DEPRESSION [None]
